FAERS Safety Report 4929378-7 (Version None)
Quarter: 2006Q1

REPORT INFORMATION
  Report Type: 
  Country: None (occurrence: None)
  Receive Date: 20060224
  Receipt Date: 20060206
  Transmission Date: 20060701
  Serious: Yes (Other)
  Sender: FDA-Public Use
  Company Number: 28541

PATIENT
  Age: 32 Year
  Sex: Female

DRUGS (1)
  1. ALDARA [Suspect]
     Indication: BOWEN'S DISEASE
     Dosage: TOPICAL
     Route: 061
     Dates: start: 20051201

REACTIONS (8)
  - APPLICATION SITE ERYTHEMA [None]
  - APPLICATION SITE PRURITUS [None]
  - DEPRESSED MOOD [None]
  - INFLUENZA LIKE ILLNESS [None]
  - MYALGIA [None]
  - PETIT MAL EPILEPSY [None]
  - PYREXIA [None]
  - VISION BLURRED [None]
